FAERS Safety Report 5600861-4 (Version None)
Quarter: 2008Q1

REPORT INFORMATION
  Report Type: 
  Country: None (occurrence: None)
  Receive Date: 20080122
  Receipt Date: 20080122
  Transmission Date: 20080703
  Serious: No
  Sender: FDA-Public Use
  Company Number: None

PATIENT
  Sex: Female
  Weight: 60.782 kg

DRUGS (1)
  1. DURAGESIC-100 [Suspect]
     Indication: POLYMYALGIA RHEUMATICA
     Dosage: 25 MG    EVERY 72 HOURS TOPICAL
     Route: 061
     Dates: start: 20071112

REACTIONS (2)
  - DRUG INEFFECTIVE [None]
  - PHARMACEUTICAL PRODUCT COMPLAINT [None]
